FAERS Safety Report 14590594 (Version 3)
Quarter: 2018Q2

REPORT INFORMATION
  Report Type: Spontaneous
  Country: US (occurrence: US)
  Receive Date: 20180302
  Receipt Date: 20180413
  Transmission Date: 20180711
  Serious: No
  Sender: FDA-Public Use
  Company Number: US-BAYER-2018-041401

PATIENT
  Sex: Female

DRUGS (1)
  1. MIRENA [Suspect]
     Active Substance: LEVONORGESTREL
     Indication: CONTRACEPTION
     Dosage: 20 MCG/24HR, CONT
     Route: 015
     Dates: start: 20170705

REACTIONS (5)
  - Urinary tract infection [Recovered/Resolved]
  - Vaginal haemorrhage [Not Recovered/Not Resolved]
  - Ovarian cyst [None]
  - Abdominal pain [Not Recovered/Not Resolved]
  - Bacterial vulvovaginitis [None]

NARRATIVE: CASE EVENT DATE: 20180224
